FAERS Safety Report 24619543 (Version 1)
Quarter: 2024Q4

REPORT INFORMATION
  Report Type: Spontaneous
  Country: US (occurrence: US)
  Receive Date: 20241114
  Receipt Date: 20241114
  Transmission Date: 20250115
  Serious: No
  Sender: CURRAX PHARMACEUTICALS
  Company Number: US-CURRAX PHARMACEUTICALS LLC-US-2024CUR000648

PATIENT
  Sex: Female

DRUGS (3)
  1. CONTRAVE [Suspect]
     Active Substance: BUPROPION HYDROCHLORIDE\NALTREXONE HYDROCHLORIDE
     Indication: Product used for unknown indication
     Dosage: STRENGTH: 90/8 MG, UNKNOWN DOSE AND FREQUENCY
     Route: 065
     Dates: start: 20240131, end: 20240206
  2. CONTRAVE [Suspect]
     Active Substance: BUPROPION HYDROCHLORIDE\NALTREXONE HYDROCHLORIDE
     Dosage: STRENGTH: 90/8 MG, ONE TABLET TWICE DAILY (SECOND WEEK)
     Route: 065
     Dates: start: 20240207, end: 20240213
  3. CONTRAVE [Suspect]
     Active Substance: BUPROPION HYDROCHLORIDE\NALTREXONE HYDROCHLORIDE
     Dosage: STRENGTH: 90/8 MG, TWO TABLETS IN THE MORNING AND ONE TABLET IN THE EVENING (THIRD WEEK)
     Route: 065
     Dates: start: 20240214

REACTIONS (3)
  - Sleep disorder [Unknown]
  - Nonspecific reaction [Unknown]
  - Palpitations [Unknown]

NARRATIVE: CASE EVENT DATE: 20240101
